FAERS Safety Report 4327169-1 (Version None)
Quarter: 2004Q1

REPORT INFORMATION
  Report Type: 
  Country: None (occurrence: None)
  Receive Date: 20040330
  Receipt Date: 20040325
  Transmission Date: 20041129
  Serious: Yes (Hospitalization)
  Sender: FDA-Public Use
  Company Number: DE-GLAXOSMITHKLINE-D0043484A

PATIENT
  Age: 36 Year
  Sex: Female

DRUGS (1)
  1. COMBIVIR [Suspect]
     Dosage: 450MG TWICE PER DAY
     Route: 048
     Dates: start: 20040101, end: 20040323

REACTIONS (4)
  - DILATATION VENTRICULAR [None]
  - DYSPNOEA [None]
  - RIGHT VENTRICULAR FAILURE [None]
  - THROMBOCYTOPENIA [None]
